FAERS Safety Report 10309234 (Version 1)
Quarter: 2014Q3

REPORT INFORMATION
  Report Type: Spontaneous
  Country: DK (occurrence: DK)
  Receive Date: 20140716
  Receipt Date: 20140716
  Transmission Date: 20150326
  Serious: Yes (Hospitalization)
  Sender: FDA-Public Use
  Company Number: DK-B.I. PHARMACEUTICALS,INC./RIDGEFIELD-2014-BI-31905DB

PATIENT
  Age: 69 Year
  Sex: Female

DRUGS (13)
  1. ONBREZ [Suspect]
     Active Substance: INDACATEROL
     Indication: CHRONIC OBSTRUCTIVE PULMONARY DISEASE
     Dosage: FORMULATION: BREEZHALER
     Route: 065
     Dates: end: 20140408
  2. SELOZOK [Concomitant]
     Active Substance: METOPROLOL SUCCINATE
     Route: 065
  3. UNIKALK BASIC [Concomitant]
     Route: 065
  4. KALIUMCHLORIDE [Concomitant]
     Route: 065
  5. SPIRIVA [Suspect]
     Active Substance: TIOTROPIUM BROMIDE MONOHYDRATE
     Indication: CHRONIC OBSTRUCTIVE PULMONARY DISEASE
     Route: 065
     Dates: end: 20140408
  6. ULTIBRO BREEZHALER [Suspect]
     Active Substance: GLYCOPYRRONIUM\INDACATEROL
     Indication: CHRONIC OBSTRUCTIVE PULMONARY DISEASE
     Dosage: FORMULATION: BREEZEHALER; DOSAGE: 1 PUFF DAILY. STRENGTH: 50 MICROGRAM GLYCOPYRRONIUM/110 MICROGRAM
     Route: 055
     Dates: start: 20140409, end: 20140604
  7. DIURAL [Concomitant]
     Active Substance: FUROSEMIDE
     Route: 065
  8. XARELTO [Concomitant]
     Active Substance: RIVAROXABAN
     Route: 065
  9. ASMANEX [Concomitant]
     Active Substance: MOMETASONE FUROATE
     Dosage: FORMULATION: TWISTHALER
     Route: 065
  10. ISOPTIN [Concomitant]
     Active Substance: VERAPAMIL HYDROCHLORIDE
     Route: 065
  11. KALEORID [Concomitant]
     Active Substance: POTASSIUM CHLORIDE
     Route: 065
  12. METOPROLOLSUCCINAT [Concomitant]
     Route: 065
  13. SIMVASTATIN. [Concomitant]
     Active Substance: SIMVASTATIN
     Route: 065

REACTIONS (3)
  - Rash [Unknown]
  - Chronic obstructive pulmonary disease [Unknown]
  - Dyspnoea [Unknown]

NARRATIVE: CASE EVENT DATE: 201404
